FAERS Safety Report 19389007 (Version 1)
Quarter: 2021Q2

REPORT INFORMATION
  Report Type: Spontaneous
  Country: US (occurrence: US)
  Receive Date: 20210607
  Receipt Date: 20210607
  Transmission Date: 20210717
  Serious: No
  Sender: FDA-Public Use
  Company Number: US-FDC LIMITED-2020RIS00281

PATIENT
  Age: 72 Year
  Sex: Male
  Weight: 72.56 kg

DRUGS (4)
  1. TIMOLOL MALEATE. [Suspect]
     Active Substance: TIMOLOL MALEATE
     Dosage: 1 GTT, 2X/DAY IN EACH EYE CURRENT BOTTLE
     Dates: start: 2020
  2. BABY ASPIRIN [Concomitant]
     Active Substance: ASPIRIN
  3. TIMOLOL MALEATE. [Suspect]
     Active Substance: TIMOLOL MALEATE
     Indication: INTRAOCULAR PRESSURE INCREASED
     Dosage: 1 GTT, 2X/DAY IN EACH EYE BOTTLE FROM A MONTH AGO
     Dates: start: 202005, end: 202005
  4. UNSPECIFIED STATIN [Concomitant]
     Active Substance: UNSPECIFIED INGREDIENT

REACTIONS (1)
  - Foreign body sensation in eyes [Recovered/Resolved]

NARRATIVE: CASE EVENT DATE: 202005
